FAERS Safety Report 10582605 (Version 1)
Quarter: 2014Q4

REPORT INFORMATION
  Report Type: Spontaneous
  Country: IT (occurrence: IT)
  Receive Date: 20141113
  Receipt Date: 20141113
  Transmission Date: 20150529
  Serious: Yes (Other)
  Sender: FDA-Public Use
  Company Number: IT-TEVA-521224ISR

PATIENT
  Age: 67 Year
  Sex: Male

DRUGS (7)
  1. METFORMIN [Concomitant]
     Active Substance: METFORMIN HYDROCHLORIDE
     Indication: PRODUCT USED FOR UNKNOWN INDICATION
     Route: 048
  2. NOZINAN - 25 MG COMPRESSE RIVESTITE CON FILM - SANOFI-AVENTIS S.P.A [Suspect]
     Active Substance: LEVOMEPROMAZINE
     Indication: DRUG ABUSE
     Route: 048
     Dates: start: 20140906, end: 20140906
  3. CORLENTOR [Concomitant]
     Active Substance: IVABRADINE HYDROCHLORIDE
     Indication: PRODUCT USED FOR UNKNOWN INDICATION
     Route: 048
  4. CRESTOR - 40 MG COMPRESSE RIVESTITE CON FILM [Concomitant]
     Indication: PRODUCT USED FOR UNKNOWN INDICATION
     Route: 048
  5. MIRTAZAPINE. [Suspect]
     Active Substance: MIRTAZAPINE
     Indication: DRUG ABUSE
     Route: 048
     Dates: start: 20140906, end: 20140906
  6. APIDRA - 100 U/ML SOLUZIONE INIETTABILE [Concomitant]
     Indication: PRODUCT USED FOR UNKNOWN INDICATION
     Route: 058
  7. TACHIDOL ADULTI - 500 MG/30 MG GRANULATO EFFERVESCENTE [Concomitant]
     Indication: PRODUCT USED FOR UNKNOWN INDICATION
     Dosage: 1 DF= 500MG PARACETAMOL, 30MG CODEIN PHOSPHATE
     Route: 048

REACTIONS (4)
  - Hyperglycaemia [Recovering/Resolving]
  - Gait disturbance [Recovering/Resolving]
  - Drug abuse [Unknown]
  - Sopor [Recovering/Resolving]

NARRATIVE: CASE EVENT DATE: 20140906
